FAERS Safety Report 4439781-X (Version None)
Quarter: 2004Q3

REPORT INFORMATION
  Report Type: 
  Country: None (occurrence: None)
  Receive Date: 20040902
  Receipt Date: 20040824
  Transmission Date: 20050211
  Serious: Yes (Hospitalization, Other)
  Sender: FDA-Public Use
  Company Number: CA-JNJFOC-20040803646

PATIENT
  Sex: Female

DRUGS (5)
  1. DURAGESIC [Suspect]
     Route: 062
  2. DURAGESIC [Suspect]
     Indication: PAIN
     Route: 062
  3. TYLENOL W/ CODEINE NO. 3 [Concomitant]
     Indication: PAIN
     Dosage: EVERY FOUR TO SIX HOURS AS NEEDED
     Route: 049
     Dates: start: 20020301
  4. LISINOPRIL [Concomitant]
     Indication: HYPERTENSION
     Dosage: 10 MG DAILY
     Route: 049
     Dates: start: 20020301
  5. TRAZODONE [Concomitant]
     Indication: DEPRESSION
     Dosage: 300 MG DAILY
     Route: 049
     Dates: start: 20020301

REACTIONS (2)
  - HEPATITIS A [None]
  - PYREXIA [None]
